FAERS Safety Report 7902864-3 (Version None)
Quarter: 2011Q4

REPORT INFORMATION
  Report Type: 
  Country: None (occurrence: None)
  Receive Date: 20111104
  Receipt Date: 20111021
  Transmission Date: 20120403
  Serious: Yes (Hospitalization)
  Sender: FDA-Public Use
  Company Number: WAES 1110USA02127

PATIENT
  Age: 78 Year
  Sex: Male

DRUGS (1)
  1. AMLODIPINE BESYLATE AND HYDROCHLOROTHIAZIDE [Suspect]
     Indication: ESSENTIAL HYPERTENSION
     Dosage: 1 TAB/DAILY PO
     Route: 048
     Dates: start: 20110712, end: 20111012

REACTIONS (7)
  - CEREBROVASCULAR ACCIDENT [None]
  - VOMITING [None]
  - BUNDLE BRANCH BLOCK RIGHT [None]
  - VENTRICULAR EXTRASYSTOLES [None]
  - ALTERED STATE OF CONSCIOUSNESS [None]
  - ALCOHOL USE [None]
  - CEREBRAL ISCHAEMIA [None]
